FAERS Safety Report 6741741-0 (Version None)
Quarter: 2010Q2

REPORT INFORMATION
  Report Type: 
  Country: None (occurrence: None)
  Receive Date: 20100520
  Receipt Date: 20091013
  Transmission Date: 20101027
  Serious: Yes (Other)
  Sender: FDA-Public Use
  Company Number: 2006150867

PATIENT
  Age: 32 Year
  Sex: Female

DRUGS (7)
  1. DEPO-PROVERA [Suspect]
     Indication: CONTRACEPTION
     Dosage: INTRAMUSCULAR
     Route: 030
     Dates: start: 19930201, end: 20060501
  2. OMEPRAZOLE [Concomitant]
  3. PROZAC [Concomitant]
  4. NAPROXEN [Concomitant]
  5. RETIN A (TRETINOIN) [Concomitant]
  6. HYDROQUINONE (HYDROQUINONE) [Concomitant]
  7. BELLADONNA ALKALOIDS (BELLADONNA ALKALOIDS) [Concomitant]

REACTIONS (2)
  - JOINT INJURY [None]
  - OSTEOPOROSIS [None]
